FAERS Safety Report 25855097 (Version 3)
Quarter: 2025Q4

REPORT INFORMATION
  Report Type: Report from Study
  Country: US (occurrence: US)
  Receive Date: 20250927
  Receipt Date: 20251223
  Transmission Date: 20260118
  Serious: Yes (Other)
  Sender: ABBVIE
  Company Number: US-ABBVIE-6477262

PATIENT
  Age: 70 Year
  Sex: Male

DRUGS (1)
  1. VENCLEXTA [Suspect]
     Active Substance: VENETOCLAX
     Indication: Chronic lymphocytic leukaemia
     Dosage: TAKING FOUR 100 MG VENETOCLAX ONCE DAILY
     Route: 048
     Dates: start: 20250905

REACTIONS (11)
  - Hodgkin^s disease [Unknown]
  - Lumbar puncture [Unknown]
  - Headache [Unknown]
  - Blood uric acid increased [Recovering/Resolving]
  - Blood alkaline phosphatase increased [Recovering/Resolving]
  - Fatigue [Unknown]
  - Weight increased [Unknown]
  - Abdominal distension [Unknown]
  - Hypogammaglobulinaemia [Unknown]
  - Pain [Unknown]
  - Constipation [Unknown]

NARRATIVE: CASE EVENT DATE: 20250101
